FAERS Safety Report 7344979-7 (Version None)
Quarter: 2011Q1

REPORT INFORMATION
  Report Type: 
  Country: None (occurrence: None)
  Receive Date: 20110310
  Receipt Date: 20110304
  Transmission Date: 20110831
  Serious: Yes (Hospitalization)
  Sender: FDA-Public Use
  Company Number: A0894344A

PATIENT
  Age: 49 Year
  Sex: Female
  Weight: 104.5 kg

DRUGS (8)
  1. AVANDIA [Suspect]
     Dosage: 8MG PER DAY
     Route: 048
     Dates: start: 20010405, end: 20020604
  2. XANAX [Concomitant]
  3. ELAVIL [Concomitant]
  4. TOPROL-XL [Concomitant]
  5. NEXIUM [Concomitant]
  6. AMARYL [Concomitant]
  7. CELEXA [Concomitant]
  8. LIPITOR [Concomitant]

REACTIONS (4)
  - ATRIAL FIBRILLATION [None]
  - MYOCARDIAL INFARCTION [None]
  - TRANSIENT ISCHAEMIC ATTACK [None]
  - CEREBROVASCULAR ACCIDENT [None]
